FAERS Safety Report 12789424 (Version 3)
Quarter: 2017Q4

REPORT INFORMATION
  Report Type: Spontaneous
  Country: US (occurrence: US)
  Receive Date: 20160928
  Receipt Date: 20171121
  Transmission Date: 20180320
  Serious: No
  Sender: FDA-Public Use
  Company Number: US-VERTEX PHARMACEUTICALS-2016-005513

PATIENT
  Age: 10 Year
  Sex: Female

DRUGS (1)
  1. KALYDECO [Suspect]
     Active Substance: IVACAFTOR
     Indication: CYSTIC FIBROSIS
     Dosage: UNK
     Route: 048
     Dates: start: 201502, end: 2016

REACTIONS (6)
  - Pulmonary function test decreased [Not Recovered/Not Resolved]
  - Lyme disease [Unknown]
  - Hypothyroidism [Not Recovered/Not Resolved]
  - Antinuclear antibody positive [Unknown]
  - Raynaud^s phenomenon [Not Recovered/Not Resolved]
  - Arthralgia [Unknown]
